FAERS Safety Report 8081117-X (Version None)
Quarter: 2012Q1

REPORT INFORMATION
  Report Type: 
  Country: None (occurrence: None)
  Receive Date: 20120130
  Receipt Date: 20120125
  Transmission Date: 20120608
  Serious: Yes (Hospitalization)
  Sender: FDA-Public Use
  Company Number: US-GLAXOSMITHKLINE-A0864156A

PATIENT
  Age: 57 Year
  Sex: Male
  Weight: 86.8 kg

DRUGS (9)
  1. TOPROL-XL [Concomitant]
  2. LIPITOR [Concomitant]
  3. NORVASC [Concomitant]
  4. AVANDARYL [Suspect]
     Indication: DIABETES MELLITUS
     Route: 048
     Dates: start: 20061116, end: 20070122
  5. AVANDIA [Suspect]
     Indication: DIABETES MELLITUS
     Route: 048
     Dates: start: 20010814, end: 20070422
  6. KEPPRA [Concomitant]
  7. ALTACE [Concomitant]
  8. GLYBURIDE [Concomitant]
  9. DIGOXIN [Concomitant]

REACTIONS (3)
  - CEREBRAL HAEMORRHAGE [None]
  - CEREBROVASCULAR ACCIDENT [None]
  - CONVULSION [None]
